FAERS Safety Report 17053639 (Version 3)
Quarter: 2020Q1

REPORT INFORMATION
  Report Type: Report from Study
  Country: US (occurrence: US)
  Receive Date: 20191120
  Receipt Date: 20200110
  Transmission Date: 20200409
  Serious: No
  Sender: FDA-Public Use
  Company Number: US-IPSEN BIOPHARMACEUTICALS, INC.-2019-21450

PATIENT
  Age: 43 Year

DRUGS (1)
  1. DYSPORT [Suspect]
     Active Substance: ABOBOTULINUMTOXINA
     Indication: TORTICOLLIS
     Dosage: 200 UNITS: (RETROCOLLIS:80, TORTICOLLIS:40, LATERCOLLIS: 80)
     Route: 065

REACTIONS (1)
  - Therapeutic response shortened [Unknown]
